FAERS Safety Report 20746860 (Version 3)
Quarter: 2023Q2

REPORT INFORMATION
  Report Type: Report from Study
  Country: DE (occurrence: DE)
  Receive Date: 20220425
  Receipt Date: 20230509
  Transmission Date: 20230722
  Serious: Yes (Other)
  Sender: FDA-Public Use
  Company Number: DE-PFIZER INC-202200594878

PATIENT
  Age: 55 Year
  Sex: Female
  Weight: 71 kg

DRUGS (2)
  1. XELJANZ XR [Suspect]
     Active Substance: TOFACITINIB CITRATE
     Indication: Rheumatoid arthritis
     Dosage: 11 MG, 1X/DAY
     Route: 048
     Dates: start: 20200709, end: 20220412
  2. CHOLECALCIFEROL [Concomitant]
     Active Substance: CHOLECALCIFEROL
     Indication: Osteoporosis prophylaxis
     Dosage: UNK
     Route: 048
     Dates: start: 20200709

REACTIONS (1)
  - Lentigo maligna [Not Recovered/Not Resolved]

NARRATIVE: CASE EVENT DATE: 20220324
